FAERS Safety Report 8240560-6 (Version None)
Quarter: 2012Q1

REPORT INFORMATION
  Report Type: 
  Country: None (occurrence: None)
  Receive Date: 20120328
  Receipt Date: 20120314
  Transmission Date: 20120608
  Serious: Yes (Other)
  Sender: FDA-Public Use
  Company Number: DE-ROCHE-1038882

PATIENT
  Sex: Female

DRUGS (12)
  1. SIMVASTATIN [Concomitant]
     Indication: HYPERLIPIDAEMIA
     Route: 048
  2. FOLIC ACID [Concomitant]
     Route: 048
  3. RAMIPRIL [Concomitant]
     Indication: HYPERTENSION
     Route: 048
  4. MABTHERA [Suspect]
     Indication: POLYARTHRITIS
     Route: 042
     Dates: start: 20120201, end: 20120201
  5. METHOTREXATE [Concomitant]
     Indication: POLYARTHRITIS
     Route: 048
  6. ASPIRIN [Concomitant]
     Route: 048
  7. LEVOTHYROXINE SODIUM [Concomitant]
     Indication: HYPOTHYROIDISM
     Route: 048
  8. IDEOS CPR [Concomitant]
     Route: 048
  9. PANTOPRAZOLE [Concomitant]
     Indication: PROPHYLAXIS AGAINST GASTROINTESTINAL ULCER
     Route: 048
  10. VESICARE [Concomitant]
     Route: 048
  11. MABTHERA [Suspect]
     Indication: RHEUMATOID ARTHRITIS
     Route: 042
     Dates: start: 20070201, end: 20100101
  12. LEVOTHYROXINE SODIUM [Concomitant]
     Route: 048

REACTIONS (3)
  - SLEEP DISORDER [None]
  - DISORIENTATION [None]
  - CONFUSIONAL STATE [None]
